FAERS Safety Report 16912224 (Version 1)
Quarter: 2019Q4

REPORT INFORMATION
  Report Type: Report from Study
  Country: None (occurrence: AU)
  Receive Date: 20191014
  Receipt Date: 20191014
  Transmission Date: 20200122
  Serious: Yes (Other)
  Sender: FDA-Public Use
  Company Number: AU-ABBVIE-19K-008-2948723-00

PATIENT
  Age: 78 Year
  Sex: Male

DRUGS (1)
  1. DUODOPA [Suspect]
     Active Substance: CARBIDOPA\LEVODOPA
     Indication: PARKINSON^S DISEASE
     Dosage: 100ML GEL CASSETTE AND FREQUENCY 16 HOURS
     Route: 050
     Dates: start: 20170407, end: 20180927

REACTIONS (2)
  - Stoma closure [Unknown]
  - Device dislocation [Unknown]

NARRATIVE: CASE EVENT DATE: 201809
